FAERS Safety Report 8422708-3 (Version None)
Quarter: 2012Q2

REPORT INFORMATION
  Report Type: 
  Country: None (occurrence: None)
  Receive Date: 20120608
  Receipt Date: 20120604
  Transmission Date: 20120825
  Serious: No
  Sender: FDA-Public Use
  Company Number: US-BAYER-2012-056402

PATIENT
  Age: 78 Year
  Sex: Male

DRUGS (7)
  1. AVODART [Concomitant]
  2. ALFUZOSIN HCL [Concomitant]
  3. GABAPENTIN [Concomitant]
  4. HYDROCHLOROTHIAZDE TAB [Concomitant]
  5. DIOVAN [Concomitant]
  6. ALEVE (CAPLET) [Suspect]
     Indication: CHEST PAIN
     Dosage: 1 TABLET - 24 COUNT
     Route: 048
     Dates: start: 20120604
  7. B12-VITAMIN [Concomitant]

REACTIONS (1)
  - DRUG INEFFECTIVE [None]
